FAERS Safety Report 21935319 (Version 1)
Quarter: 2023Q1

REPORT INFORMATION
  Report Type: Spontaneous
  Country: US (occurrence: None)
  Receive Date: 20230131
  Receipt Date: 20230131
  Transmission Date: 20230417
  Serious: No
  Sender: FDA-Public Use
  Company Number: None

PATIENT
  Sex: Male
  Weight: 54.6 kg

DRUGS (2)
  1. FLUOROURACIL [Suspect]
     Active Substance: FLUOROURACIL
  2. CISPLATIN [Concomitant]

REACTIONS (18)
  - Nausea [None]
  - Pneumonia [None]
  - Haematemesis [None]
  - Haemoptysis [None]
  - Hypoxia [None]
  - Respiratory failure [None]
  - Sternotomy [None]
  - Endocarditis [None]
  - Post procedural complication [None]
  - Atrial fibrillation [None]
  - Ventricular tachycardia [None]
  - Aphasia [None]
  - Acute kidney injury [None]
  - Septic shock [None]
  - Anaemia [None]
  - Agitation [None]
  - Dialysis [None]
  - Emphysema [None]

NARRATIVE: CASE EVENT DATE: 20230105
